FAERS Safety Report 23422360 (Version 1)
Quarter: 2024Q1

REPORT INFORMATION
  Report Type: Report from Study
  Country: ES (occurrence: ES)
  Receive Date: 20240119
  Receipt Date: 20240119
  Transmission Date: 20240410
  Serious: Yes (Death, Other)
  Sender: FDA-Public Use
  Company Number: ES-ABBVIE-5595846

PATIENT
  Age: 76 Year
  Sex: Male

DRUGS (2)
  1. CARBIDOPA\LEVODOPA [Suspect]
     Active Substance: CARBIDOPA\LEVODOPA
     Indication: Parkinson^s disease
     Route: 050
     Dates: start: 20220425
  2. CARBIDOPA\LEVODOPA [Suspect]
     Active Substance: CARBIDOPA\LEVODOPA

REACTIONS (5)
  - Death [Fatal]
  - Fall [Unknown]
  - Pain in extremity [Unknown]
  - Hypophagia [Unknown]
  - Gait inability [Unknown]

NARRATIVE: CASE EVENT DATE: 20231231
